FAERS Safety Report 11927895 (Version 1)
Quarter: 2016Q1

REPORT INFORMATION
  Report Type: Spontaneous
  Country: US (occurrence: US)
  Receive Date: 20160119
  Receipt Date: 20160119
  Transmission Date: 20160526
  Serious: Yes (Hospitalization)
  Sender: FDA-Public Use
  Company Number: US-PFIZER INC-2016018475

PATIENT
  Age: 82 Year
  Sex: Female
  Weight: 63.5 kg

DRUGS (10)
  1. OMEPRAZOLE. [Concomitant]
     Active Substance: OMEPRAZOLE
     Indication: GASTROOESOPHAGEAL REFLUX DISEASE
  2. COUMADIN [Suspect]
     Active Substance: WARFARIN SODIUM
     Indication: BLOOD DISORDER
     Dosage: 4 MG, 1X/DAY
  3. OMEPRAZOLE. [Concomitant]
     Active Substance: OMEPRAZOLE
     Indication: DYSPEPSIA
     Dosage: 1 A DAY
  4. CHLORTHALIDONE. [Concomitant]
     Active Substance: CHLORTHALIDONE
     Indication: HYPERTENSION
     Dosage: 25 MG, 1X/DAY
  5. LYRICA [Suspect]
     Active Substance: PREGABALIN
     Dosage: 4 DF, DOUBLE HER DOSE
  6. COUMADIN [Suspect]
     Active Substance: WARFARIN SODIUM
     Indication: PROPHYLAXIS
  7. ALLOPURINOL. [Concomitant]
     Active Substance: ALLOPURINOL
     Indication: GOUT
     Dosage: 100 MG, 2X/DAY
  8. LYRICA [Suspect]
     Active Substance: PREGABALIN
     Indication: NEUROPATHY PERIPHERAL
     Dosage: 2 DF, TAKING TWO LYRICA
     Dates: start: 2014
  9. LYRICA [Suspect]
     Active Substance: PREGABALIN
     Dosage: 50 MG, 3X/DAY
     Route: 048
  10. ATORVASTATIN [Concomitant]
     Active Substance: ATORVASTATIN
     Dosage: 10MG AT NIGHT
     Dates: start: 2015

REACTIONS (4)
  - Haemorrhage [Unknown]
  - Urinary tract infection [Unknown]
  - Somnolence [Unknown]
  - Back disorder [Unknown]

NARRATIVE: CASE EVENT DATE: 201511
